FAERS Safety Report 5201993-5 (Version None)
Quarter: 2007Q1

REPORT INFORMATION
  Report Type: 
  Country: None (occurrence: None)
  Receive Date: 20070104
  Receipt Date: 20070104
  Transmission Date: 20070707
  Serious: Yes (Death, Hospitalization)
  Sender: FDA-Public Use
  Company Number: None

PATIENT
  Sex: Female

DRUGS (1)
  1. MACUGEN [Suspect]
     Indication: MACULAR DEGENERATION
     Dosage: 0.3 MG   PRN   OPHTHALMIC
     Route: 047
     Dates: start: 20061118, end: 20061118

REACTIONS (2)
  - CHOKING [None]
  - RESPIRATORY ARREST [None]
